FAERS Safety Report 10403256 (Version 3)
Quarter: 2014Q3

REPORT INFORMATION
  Report Type: Spontaneous
  Country: CH (occurrence: CH)
  Receive Date: 20140822
  Receipt Date: 20140904
  Transmission Date: 20150326
  Serious: No
  Sender: FDA-Public Use
  Company Number: CH-PFIZER INC-2014231367

PATIENT
  Age: 73 Year
  Sex: Female

DRUGS (5)
  1. QUETIAPIN MEPHA [Suspect]
     Active Substance: QUETIAPINE FUMARATE
     Dosage: 25 MG, THREE TIMES DAILY
     Dates: start: 20140814, end: 20140814
  2. XANAX [Suspect]
     Active Substance: ALPRAZOLAM
     Indication: AGITATION
     Dosage: ONLY RARELY AT 0.5 MG, ONCE A DAY, ALWAYS IN THE EVENING
     Dates: end: 20140811
  3. XANAX [Suspect]
     Active Substance: ALPRAZOLAM
     Dosage: 0.25 MG, ONCE A DAY
     Dates: start: 20140814
  4. QUETIAPIN MEPHA [Suspect]
     Active Substance: QUETIAPINE FUMARATE
     Indication: BIPOLAR DISORDER
     Dosage: 25 MG, TWICE DAILY
     Dates: start: 20140813, end: 20140813
  5. XANAX [Suspect]
     Active Substance: ALPRAZOLAM
     Indication: SLEEP DISORDER
     Dosage: 0.25 MG, ONCE A DAY, ALWAYS IN THE EVENING
     Dates: start: 1991

REACTIONS (6)
  - Fatigue [Recovered/Resolved]
  - Abnormal behaviour [Recovered/Resolved]
  - Confusional state [Recovered/Resolved]
  - Aphasia [Recovered/Resolved]
  - Feeling abnormal [Recovered/Resolved]
  - Ear disorder [Unknown]

NARRATIVE: CASE EVENT DATE: 20140817
